FAERS Safety Report 4529143-9 (Version None)
Quarter: 2004Q4

REPORT INFORMATION
  Report Type: 
  Country: None (occurrence: None)
  Receive Date: 20041202
  Receipt Date: 20040826
  Transmission Date: 20050328
  Serious: No
  Sender: FDA-Public Use
  Company Number: 200420409BWH

PATIENT
  Age: 45 Year
  Sex: Male
  Weight: 102.0593 kg

DRUGS (3)
  1. LEVITRA [Suspect]
     Indication: ERECTILE DYSFUNCTION
     Dosage: 10 MG, OW, ORAL
     Route: 048
     Dates: start: 20040701
  2. BENICAR [Concomitant]
  3. METOPROLOL [Concomitant]

REACTIONS (1)
  - HYPOAESTHESIA [None]
